FAERS Safety Report 6158788-8 (Version None)
Quarter: 2009Q2

REPORT INFORMATION
  Report Type: 
  Country: None (occurrence: None)
  Receive Date: 20090415
  Receipt Date: 20090404
  Transmission Date: 20091009
  Serious: Yes (Hospitalization, Other)
  Sender: FDA-Public Use
  Company Number: 2009EN000044

PATIENT
  Age: 20 Year
  Sex: Male

DRUGS (1)
  1. ONCASPAR [Suspect]
     Indication: ACUTE LYMPHOCYTIC LEUKAEMIA
     Dates: start: 20080501

REACTIONS (5)
  - CEREBRAL VENOUS THROMBOSIS [None]
  - CONVULSION [None]
  - HEMIPARESIS [None]
  - SUPERIOR SAGITTAL SINUS THROMBOSIS [None]
  - VOMITING [None]
